FAERS Safety Report 7678404-3 (Version None)
Quarter: 2011Q3

REPORT INFORMATION
  Report Type: 
  Country: None (occurrence: None)
  Receive Date: 20110811
  Receipt Date: 20110809
  Transmission Date: 20111222
  Serious: Yes (Other)
  Sender: FDA-Public Use
  Company Number: CA-ABBOTT-11P-028-0835934-00

PATIENT
  Sex: Female
  Weight: 72.64 kg

DRUGS (1)
  1. HUMIRA [Suspect]
     Indication: PRODUCT USED FOR UNKNOWN INDICATION
     Route: 058
     Dates: start: 20080201

REACTIONS (6)
  - NAUSEA [None]
  - VITH NERVE PARALYSIS [None]
  - BLOOD CHOLESTEROL INCREASED [None]
  - DIPLOPIA [None]
  - HYPERTENSION [None]
  - PULMONARY EMBOLISM [None]
